FAERS Safety Report 6779202-5 (Version None)
Quarter: 2010Q2

REPORT INFORMATION
  Report Type: 
  Country: None (occurrence: None)
  Receive Date: 20100618
  Receipt Date: 20100609
  Transmission Date: 20101027
  Serious: Yes (Hospitalization)
  Sender: FDA-Public Use
  Company Number: US-NOVOPROD-309914

PATIENT
  Sex: Female

DRUGS (1)
  1. VICTOZA [Suspect]
     Dosage: UNK
     Route: 058
     Dates: start: 20100601

REACTIONS (1)
  - PANCREATITIS [None]
